FAERS Safety Report 21664521 (Version 1)
Quarter: 2022Q4

REPORT INFORMATION
  Report Type: Spontaneous
  Country: GB (occurrence: GB)
  Receive Date: 20221130
  Receipt Date: 20221130
  Transmission Date: 20230113
  Serious: Yes (Other)
  Sender: FDA-Public Use
  Company Number: None

PATIENT
  Age: 70 Year
  Sex: Male
  Weight: 110 kg

DRUGS (7)
  1. CANAGLIFLOZIN [Suspect]
     Active Substance: CANAGLIFLOZIN
     Indication: Product used for unknown indication
     Dosage: TAKEN PREFERABLY BEFORE BREAKFAST
     Route: 048
     Dates: start: 20220110
  2. AMOROLFINE [Concomitant]
     Active Substance: AMOROLFINE
     Indication: Nail infection
     Dosage: APPLY 1 OR 2 TIMES
     Route: 065
     Dates: start: 20211231
  3. FLUAD NOS [Concomitant]
     Active Substance: INFLUENZA VIRUS VACCINE
     Indication: Influenza immunisation
     Route: 065
     Dates: start: 20211122, end: 20220104
  4. COMIRNATY [Concomitant]
     Active Substance: TOZINAMERAN
     Indication: COVID-19 immunisation
     Route: 030
     Dates: start: 20211208, end: 20211208
  5. MINERAL OIL\PETROLATUM\WAX, EMULSIFYING [Concomitant]
     Active Substance: MINERAL OIL\PETROLATUM\WAX, EMULSIFYING
     Indication: Type 2 diabetes mellitus
     Dosage: USE AS A WASH FOR LEGS THEN APPLY TWICE A DAY TO BOTH LEGS AND FEET
     Route: 065
     Dates: start: 20211231
  6. BECLOMETHASONE\FORMOTEROL [Concomitant]
     Active Substance: BECLOMETHASONE\FORMOTEROL
     Dosage: 100MICROGRAMS/DOSE / 6MICROGRAMS/DOSE; INHALER
     Route: 055
     Dates: start: 20220106
  7. DERMOL [BENZALKONIUM CHLORIDE;CHLORHEXIDINE HYDROCHLORIDE;ISOPROPYL MY [Concomitant]
     Route: 065
     Dates: start: 20220110

REACTIONS (3)
  - Dermatitis bullous [Unknown]
  - Skin necrosis [Unknown]
  - Skin ulcer [Recovered/Resolved with Sequelae]

NARRATIVE: CASE EVENT DATE: 20220110
